FAERS Safety Report 13532166 (Version 3)
Quarter: 2017Q3

REPORT INFORMATION
  Report Type: Spontaneous
  Country: RU (occurrence: RU)
  Receive Date: 20170510
  Receipt Date: 20170721
  Transmission Date: 20171127
  Serious: Yes (Hospitalization)
  Sender: FDA-Public Use
  Company Number: RU-ASTRAZENECA-2017SE48111

PATIENT
  Age: 58 Year
  Sex: Male
  Weight: 78 kg

DRUGS (3)
  1. THROMBO ASS [Concomitant]
     Active Substance: ASPIRIN
     Dates: start: 201611, end: 201707
  2. BRILINTA [Suspect]
     Active Substance: TICAGRELOR
     Indication: MYOCARDIAL INFARCTION
     Route: 048
     Dates: start: 20161128
  3. TULIP [Concomitant]
     Active Substance: ATORVASTATIN
     Dates: start: 201611, end: 201707

REACTIONS (9)
  - Pyrexia [Not Recovered/Not Resolved]
  - Weight decreased [Not Recovered/Not Resolved]
  - Blood pressure increased [Unknown]
  - Blood pressure decreased [Not Recovered/Not Resolved]
  - Rheumatoid arthritis [Not Recovered/Not Resolved]
  - Lung disorder [Recovered/Resolved]
  - Pulmonary oedema [Recovered/Resolved]
  - Oedema peripheral [Recovering/Resolving]
  - Anosmia [Not Recovered/Not Resolved]

NARRATIVE: CASE EVENT DATE: 2017
